FAERS Safety Report 9170725 (Version 1)
Quarter: 2013Q1

REPORT INFORMATION
  Report Type: Spontaneous
  Country: US (occurrence: None)
  Receive Date: 20130308
  Receipt Date: 20130308
  Transmission Date: 20140127
  Serious: Yes (Life-Threatening, Hospitalization, Other)
  Sender: FDA-Public Use
  Company Number: 2013P1002799

PATIENT
  Age: 15 Year
  Sex: Male

DRUGS (2)
  1. NAPROXEN [Suspect]
     Dosage: 150 PILLS
  2. IBUPROFEN [Suspect]
     Dosage: 50 PILLS

REACTIONS (10)
  - Shock [None]
  - Mental status changes [None]
  - Vomiting [None]
  - Heart rate increased [None]
  - Cardiac murmur [None]
  - White blood cell count increased [None]
  - Blood glucose increased [None]
  - Anion gap increased [None]
  - Acidosis [None]
  - Suicide attempt [None]
